FAERS Safety Report 5019305-9 (Version None)
Quarter: 2006Q2

REPORT INFORMATION
  Report Type: 
  Country: None (occurrence: None)
  Receive Date: 20060606
  Receipt Date: 20051226
  Transmission Date: 20061013
  Serious: Yes (Death, Life-Threatening, Hospitalization)
  Sender: FDA-Public Use
  Company Number: JP-ROCHE-429979

PATIENT
  Age: 31 Year
  Sex: Female

DRUGS (43)
  1. MYCOPHENOLATE MOFETIL [Suspect]
     Route: 048
     Dates: start: 20041130, end: 20041130
  2. MYCOPHENOLATE MOFETIL [Suspect]
     Route: 048
     Dates: start: 20041202, end: 20041202
  3. MYCOPHENOLATE MOFETIL [Suspect]
     Route: 048
     Dates: start: 20041203, end: 20041206
  4. MYCOPHENOLATE MOFETIL [Suspect]
     Route: 048
     Dates: start: 20041207, end: 20041212
  5. MYCOPHENOLATE MOFETIL [Suspect]
     Route: 048
     Dates: start: 20041213, end: 20050116
  6. MYCOPHENOLATE MOFETIL [Suspect]
     Route: 048
     Dates: start: 20050117, end: 20050130
  7. MYCOPHENOLATE MOFETIL [Suspect]
     Route: 048
     Dates: start: 20050131, end: 20050314
  8. MYCOPHENOLATE MOFETIL [Suspect]
     Route: 048
     Dates: start: 20050315, end: 20050607
  9. MYCOPHENOLATE MOFETIL [Suspect]
     Route: 048
     Dates: start: 20050608, end: 20050712
  10. MYCOPHENOLATE MOFETIL [Suspect]
     Route: 048
     Dates: start: 20050713, end: 20050922
  11. MYCOPHENOLATE MOFETIL [Suspect]
     Route: 048
     Dates: start: 20051031, end: 20051101
  12. MYCOPHENOLATE MOFETIL [Suspect]
     Route: 048
     Dates: start: 20051102, end: 20051102
  13. MYCOPHENOLATE MOFETIL [Suspect]
     Route: 048
     Dates: start: 20051103, end: 20051120
  14. MYCOPHENOLATE MOFETIL [Suspect]
     Route: 048
     Dates: start: 20051121, end: 20051121
  15. MYCOPHENOLATE MOFETIL [Suspect]
     Route: 048
     Dates: start: 20051122, end: 20060228
  16. MYCOPHENOLATE MOFETIL [Suspect]
     Route: 048
     Dates: start: 20060301, end: 20060305
  17. PREDNISOLONE [Suspect]
     Route: 048
     Dates: start: 20041211
  18. PREDNISOLONE [Suspect]
     Route: 048
     Dates: start: 20051015, end: 20060308
  19. PREDNISOLONE [Suspect]
     Route: 048
     Dates: start: 20060418, end: 20060423
  20. PROGRAF [Suspect]
     Route: 048
     Dates: start: 20041211, end: 20051027
  21. CYCLOFOSFAMIDE [Suspect]
     Route: 042
     Dates: start: 20051015
  22. PROGRAF [Suspect]
     Route: 042
     Dates: start: 20041202, end: 20041210
  23. ADRIACIN [Suspect]
     Route: 042
     Dates: start: 20051015
  24. VINCRISTINE SULFATE [Suspect]
     Route: 042
     Dates: start: 20051015
  25. RITUXIMAB [Suspect]
     Route: 042
     Dates: start: 20051005, end: 20051208
  26. SOLU-MEDROL [Concomitant]
     Route: 042
     Dates: start: 20041201, end: 20041210
  27. SIMULECT [Concomitant]
     Dosage: STOPPED ON 1 DECEMBER 2004 AND RE-STARTED ON 5 DECEMBER 2004.
     Route: 042
     Dates: start: 20041201, end: 20041205
  28. SULBACTAM SODIUM [Concomitant]
     Route: 042
     Dates: start: 20041201, end: 20041210
  29. BAKTAR [Concomitant]
     Route: 048
     Dates: start: 20041222
  30. PRODIF [Concomitant]
     Route: 042
     Dates: start: 20041201, end: 20041201
  31. FUNGUARD [Concomitant]
     Dosage: STOPPED ON 6 DECEMBER 2004 AND RE-STARTED ON 15 DECEMBER 2004.
     Route: 042
     Dates: start: 20041201, end: 20041228
  32. GASTER [Concomitant]
     Route: 042
     Dates: start: 20041201, end: 20041215
  33. NICARDIPINE HYDROCHLORIDE [Concomitant]
     Route: 042
     Dates: start: 20041202, end: 20041206
  34. HERBESSER [Concomitant]
     Route: 042
     Dates: start: 20041206, end: 20041210
  35. ZOVIRAX [Concomitant]
     Route: 042
     Dates: start: 20041210, end: 20041220
  36. DILTIAZEM HCL [Concomitant]
     Route: 048
     Dates: start: 20041216, end: 20050203
  37. GASTER D [Concomitant]
     Route: 048
     Dates: start: 20041216, end: 20060423
  38. ZOVIRAX [Concomitant]
     Dosage: STOPPED AT AN UNKNOWN TIME AND RE-STARTED ON 16 NOVEMBER 2005. STOPPED ON 5 DECEMBER 2005 AND RE-ST+
     Route: 048
     Dates: start: 20041221, end: 20060220
  39. BACTRIM [Concomitant]
     Route: 042
     Dates: start: 20041201, end: 20041221
  40. ITRIZOLE [Concomitant]
     Route: 048
     Dates: start: 20041229, end: 20050124
  41. ATORVASTATIN CALCIUM [Concomitant]
     Route: 048
     Dates: start: 20050129
  42. NEORAL [Concomitant]
     Route: 048
     Dates: start: 20051111, end: 20060423
  43. OMEPRAL [Concomitant]
     Route: 048
     Dates: start: 20051201, end: 20051207

REACTIONS (11)
  - CYTOMEGALOVIRUS VIRAEMIA [None]
  - EPSTEIN-BARR VIRAEMIA [None]
  - HAEMODIALYSIS [None]
  - HYPERBILIRUBINAEMIA [None]
  - HYPERCHOLESTEROLAEMIA [None]
  - HYPERTRIGLYCERIDAEMIA [None]
  - LYMPHOPROLIFERATIVE DISORDER [None]
  - PNEUMATOSIS INTESTINALIS [None]
  - RENAL FAILURE [None]
  - THROMBOTIC MICROANGIOPATHY [None]
  - TREMOR [None]
